FAERS Safety Report 16290826 (Version 1)
Quarter: 2019Q2

REPORT INFORMATION
  Report Type: Spontaneous
  Country: SE (occurrence: SE)
  Receive Date: 20190509
  Receipt Date: 20190509
  Transmission Date: 20190711
  Serious: Yes (Other)
  Sender: FDA-Public Use
  Company Number: SE-TEVA-2019-SE-1046848

PATIENT
  Sex: Male

DRUGS (6)
  1. GEMADOL 50 MG DEPOTKAPSEL, H?RD [Concomitant]
     Route: 048
     Dates: start: 20181123
  2. GABAPENTIN. [Suspect]
     Active Substance: GABAPENTIN
     Indication: NEURALGIA
  3. CANDESARTAN/HYDROCHLOROTHIAZIDE [Concomitant]
     Active Substance: CANDESARTAN CILEXETIL\HYDROCHLOROTHIAZIDE
     Dosage: ^32 MG/12. 5 MG^?0.5-1 TABLET 1 TIMES/DAY
     Dates: start: 20181218
  4. PRAMIPEXOLE. [Concomitant]
     Active Substance: PRAMIPEXOLE
     Dosage: 1/2 TABLET AT NIGHT IF NECESSARY
     Route: 048
     Dates: start: 20160920
  5. GABAPENTIN. [Suspect]
     Active Substance: GABAPENTIN
     Indication: FIBROMYALGIA
     Dosage: BEEN TAKEN IN PERIODS
     Route: 048
     Dates: start: 20181217, end: 201902
  6. ORUDIS 2,5 % GEL [Concomitant]
     Dates: start: 20161206

REACTIONS (2)
  - Palpitations [Recovered/Resolved]
  - Tachycardia [Recovered/Resolved]
